FAERS Safety Report 9374610 (Version 1)
Quarter: 2013Q2

REPORT INFORMATION
  Report Type: Spontaneous
  Country: IL (occurrence: None)
  Receive Date: 20130624
  Receipt Date: 20130624
  Transmission Date: 20140414
  Serious: Yes (Hospitalization)
  Sender: FDA-Public Use
  Company Number: 20130314

PATIENT
  Age: 70 Year
  Sex: Male

DRUGS (3)
  1. VENOFER [Suspect]
     Indication: ANAEMIA
     Dosage: 200 MG IN 150 ML OVER 45 MIN INTRAVENOUS DRIP
     Route: 041
  2. EPOETIN BETA [Concomitant]
  3. FUROSEMIDE [Concomitant]

REACTIONS (3)
  - Acute myocardial infarction [None]
  - Renal impairment [None]
  - Haemodialysis [None]
